FAERS Safety Report 24458221 (Version 7)
Quarter: 2024Q4

REPORT INFORMATION
  Report Type: Report from Study
  Country: ES (occurrence: ES)
  Receive Date: 20241018
  Receipt Date: 20241217
  Transmission Date: 20250115
  Serious: Yes (Death, Hospitalization, Other)
  Sender: ABBVIE
  Company Number: ES-ABBVIE-5965745

PATIENT
  Age: 76 Year
  Sex: Female
  Weight: 58 kg

DRUGS (3)
  1. CARBIDOPA\LEVODOPA [Suspect]
     Active Substance: CARBIDOPA\LEVODOPA
     Indication: Parkinson^s disease
     Dosage: LAST ADMIN DATE: OCT 2024
     Route: 050
     Dates: start: 20241002
  2. CARBIDOPA\LEVODOPA [Suspect]
     Active Substance: CARBIDOPA\LEVODOPA
     Dosage: MODIFIED DOSE?START DATE OCT 2024
     Route: 050
     Dates: end: 20241023
  3. MOVICOL [Concomitant]
     Active Substance: POLYETHYLENE GLYCOL 3350\POTASSIUM CHLORIDE\SODIUM BICARBONATE\SODIUM CHLORIDE
     Indication: Constipation
     Route: 065

REACTIONS (7)
  - Intestinal perforation [Fatal]
  - Stoma site discharge [Unknown]
  - Peritonitis [Unknown]
  - Gastric infection [Not Recovered/Not Resolved]
  - Unevaluable event [Not Recovered/Not Resolved]
  - Sepsis [Fatal]
  - Freezing phenomenon [Unknown]

NARRATIVE: CASE EVENT DATE: 20241001
